FAERS Safety Report 6832111-5 (Version None)
Quarter: 2010Q3

REPORT INFORMATION
  Report Type: 
  Country: None (occurrence: None)
  Receive Date: 20100712
  Receipt Date: 20100702
  Transmission Date: 20110219
  Serious: Yes (Disabling)
  Sender: FDA-Public Use
  Company Number: GXKR2010GB07378

PATIENT
  Age: 82 Year
  Sex: Male

DRUGS (3)
  1. ACETYLSALICYLIC ACID SRT [Suspect]
     Indication: CEREBROVASCULAR ACCIDENT
     Dosage: LOW-DOSE
     Route: 065
  2. ACETYLSALICYLIC ACID SRT [Suspect]
     Indication: MYOCARDIAL ISCHAEMIA
  3. RANIBIZUMAB [Concomitant]
     Indication: MACULAR DEGENERATION

REACTIONS (5)
  - BLINDNESS [None]
  - CHOROIDAL HAEMORRHAGE [None]
  - RETINAL HAEMORRHAGE [None]
  - VITRECTOMY [None]
  - VITREOUS HAEMORRHAGE [None]
